FAERS Safety Report 24288196 (Version 1)
Quarter: 2024Q3

REPORT INFORMATION
  Report Type: Spontaneous
  Country: JP (occurrence: JP)
  Receive Date: 20240905
  Receipt Date: 20240905
  Transmission Date: 20241017
  Serious: Yes (Hospitalization)
  Sender: JOHNSON AND JOHNSON
  Company Number: JP-MTPC-MTPC2024-0018389

PATIENT
  Age: 5 Decade
  Sex: Female

DRUGS (8)
  1. CANAGLIFLOZIN [Suspect]
     Active Substance: CANAGLIFLOZIN
     Indication: Type 2 diabetes mellitus
     Dosage: 100 MILLIGRAM, QD
     Route: 065
  2. TENELIGLIPTIN [Suspect]
     Active Substance: TENELIGLIPTIN
     Indication: Type 2 diabetes mellitus
     Dosage: 20 MILLIGRAM, QD
     Route: 065
  3. METFORMIN HYDROCHLORIDE [Concomitant]
     Active Substance: METFORMIN HYDROCHLORIDE
     Dosage: 500 MILLIGRAM, QD
     Route: 065
  4. BEZAFIBRATE [Concomitant]
     Active Substance: BEZAFIBRATE
     Dosage: 400 MILLIGRAM, QD
     Route: 065
  5. ELDECALCITOL [Concomitant]
     Active Substance: ELDECALCITOL
     Dosage: 0.75 MICROGRAM, QD
     Route: 065
  6. ANASTROZOLE [Concomitant]
     Active Substance: ANASTROZOLE
     Dosage: 1 MILLIGRAM, QD
     Route: 065
  7. MAGNESIUM OXIDE [Concomitant]
     Active Substance: MAGNESIUM OXIDE
     Dosage: 990 MILLIGRAM, QD
     Route: 065
  8. LINACLOTIDE [Concomitant]
     Active Substance: LINACLOTIDE
     Dosage: 0.5 MILLIGRAM, QD
     Route: 065

REACTIONS (3)
  - COVID-19 [Unknown]
  - Metabolic alkalosis [Unknown]
  - Euglycaemic diabetic ketoacidosis [Unknown]
